FAERS Safety Report 7243306-3 (Version None)
Quarter: 2011Q1

REPORT INFORMATION
  Report Type: 
  Country: None (occurrence: None)
  Receive Date: 20110125
  Receipt Date: 20110114
  Transmission Date: 20110831
  Serious: Yes (Other)
  Sender: FDA-Public Use
  Company Number: US-ROCHE-754576

PATIENT
  Sex: Female

DRUGS (3)
  1. I CAPS [Concomitant]
  2. AVASTIN [Suspect]
     Dosage: FREQUENCY : ONCE
     Route: 031
     Dates: start: 20101220, end: 20101226
  3. ASPIRIN [Concomitant]

REACTIONS (1)
  - PSEUDOENDOPHTHALMITIS [None]
